FAERS Safety Report 21445627 (Version 1)
Quarter: 2022Q4

REPORT INFORMATION
  Report Type: Spontaneous
  Country: JP (occurrence: JP)
  Receive Date: 20221012
  Receipt Date: 20221012
  Transmission Date: 20230113
  Serious: Yes (Hospitalization, Other)
  Sender: FDA-Public Use
  Company Number: JP-MYLANLABS-2022M1113306

PATIENT
  Age: 15 Year
  Sex: Female

DRUGS (1)
  1. VERAPAMIL [Suspect]
     Active Substance: VERAPAMIL HYDROCHLORIDE
     Indication: Wolff-Parkinson-White syndrome
     Dosage: UNK
     Route: 048

REACTIONS (3)
  - Vomiting [Recovering/Resolving]
  - Drug abuse [Unknown]
  - Overdose [Unknown]
